FAERS Safety Report 5702068-9 (Version None)
Quarter: 2008Q2

REPORT INFORMATION
  Report Type: 
  Country: None (occurrence: None)
  Receive Date: 20080411
  Receipt Date: 20070716
  Transmission Date: 20081010
  Serious: No
  Sender: FDA-Public Use
  Company Number: US-ABBOTT-07P-163-0375055-00

PATIENT
  Age: 49 Year
  Sex: Female

DRUGS (2)
  1. DEPAKOTE [Suspect]
     Indication: BIPOLAR DISORDER
     Route: 048
     Dates: start: 20070615, end: 20070709
  2. BUPROPION HCL [Suspect]
     Indication: BIPOLAR DISORDER
     Route: 048
     Dates: start: 20070629, end: 20070709

REACTIONS (2)
  - AMNESIA [None]
  - PARANOIA [None]
